FAERS Safety Report 24333915 (Version 1)
Quarter: 2024Q3

REPORT INFORMATION
  Report Type: Spontaneous
  Country: US (occurrence: None)
  Receive Date: 20240917
  Receipt Date: 20240917
  Transmission Date: 20241016
  Serious: Yes (Disabling)
  Sender: Public
  Company Number: None

PATIENT
  Age: 70 Year
  Sex: Female
  Weight: 76.5 kg

DRUGS (7)
  1. ROSUVASTATIN CALCIUM [Suspect]
     Active Substance: ROSUVASTATIN CALCIUM
     Indication: Type IIa hyperlipidaemia
     Dosage: FREQUENCY : DAILY;?
     Route: 048
  2. EZETIMIBE [Concomitant]
     Active Substance: EZETIMIBE
  3. LOSARTAN POTASSIUM [Concomitant]
     Active Substance: LOSARTAN POTASSIUM
  4. AMLODIPINE BESYLATE [Concomitant]
     Active Substance: AMLODIPINE BESYLATE
  5. NIACIN [Concomitant]
     Active Substance: NIACIN
  6. CALCIUM [Concomitant]
     Active Substance: CALCIUM
  7. VITAMIN D [Concomitant]
     Active Substance: VITAMIN D NOS

REACTIONS (3)
  - Tendonitis [None]
  - Gait inability [None]
  - Peripheral swelling [None]

NARRATIVE: CASE EVENT DATE: 20240317
